FAERS Safety Report 7240255-1 (Version None)
Quarter: 2011Q1

REPORT INFORMATION
  Report Type: 
  Country: None (occurrence: None)
  Receive Date: 20110124
  Receipt Date: 20110114
  Transmission Date: 20110831
  Serious: Yes (Other)
  Sender: FDA-Public Use
  Company Number: US-PFIZER INC-HQWYE126204FEB05

PATIENT
  Sex: Female

DRUGS (7)
  1. COREG [Concomitant]
     Dosage: UNK
  2. LOESTRIN 1.5/30 [Concomitant]
     Dosage: UNK
  3. PREMARIN [Suspect]
     Indication: HORMONE REPLACEMENT THERAPY
     Dosage: UNK
     Route: 048
     Dates: start: 19940101, end: 20010101
  4. ZOCOR [Concomitant]
     Dosage: UNK
  5. MICARDIS [Concomitant]
     Dosage: UNK
  6. CYCRIN [Suspect]
     Indication: HORMONE REPLACEMENT THERAPY
     Dosage: UNK
     Route: 048
     Dates: start: 19940101, end: 20010101
  7. PREMPRO [Suspect]
     Indication: HORMONE REPLACEMENT THERAPY
     Dosage: UNK
     Route: 048
     Dates: start: 19940101, end: 20010101

REACTIONS (2)
  - BREAST CANCER [None]
  - MULTIPLE MYELOMA [None]
